FAERS Safety Report 24238841 (Version 1)
Quarter: 2024Q3

REPORT INFORMATION
  Report Type: Spontaneous
  Country: CN (occurrence: CN)
  Receive Date: 20240822
  Receipt Date: 20240822
  Transmission Date: 20241016
  Serious: Yes (Other)
  Sender: DR REDDYS
  Company Number: None

PATIENT
  Age: 71 Year
  Sex: Female
  Weight: 50 kg

DRUGS (3)
  1. OLANZAPINE [Suspect]
     Active Substance: OLANZAPINE
     Indication: Dementia Alzheimer^s type
     Dosage: 1TABLET,QD
     Route: 048
     Dates: start: 20240512, end: 20240801
  2. OLANZAPINE [Suspect]
     Active Substance: OLANZAPINE
     Dosage: 4TABLETS,QD
     Route: 048
     Dates: start: 20240802, end: 20240802
  3. OLANZAPINE [Suspect]
     Active Substance: OLANZAPINE
     Dosage: 1TABLET,QD
     Route: 048
     Dates: start: 20240803, end: 20240804

REACTIONS (3)
  - Coma [Recovering/Resolving]
  - Blood creatinine increased [Recovering/Resolving]
  - Blood glucose increased [Recovering/Resolving]

NARRATIVE: CASE EVENT DATE: 20240802
